FAERS Safety Report 9189795 (Version 5)
Quarter: 2015Q4

REPORT INFORMATION
  Report Type: Spontaneous
  Country: JP (occurrence: JP)
  Receive Date: 20130326
  Receipt Date: 20151111
  Transmission Date: 20160305
  Serious: Yes (Other)
  Sender: FDA-Public Use
  Company Number: JP-PFIZER INC-2013096130

PATIENT
  Age: 22 Month
  Sex: Female
  Weight: 10 kg

DRUGS (11)
  1. FOSPHENYTOIN SODIUM. [Suspect]
     Active Substance: FOSPHENYTOIN SODIUM
     Indication: SEIZURE
     Dosage: 22.5 MG/KG/DAY
     Route: 042
     Dates: start: 20130314, end: 20130314
  2. METHYLPREDNISOLONE. [Concomitant]
     Active Substance: METHYLPREDNISOLONE
     Indication: ENCEPHALOPATHY
     Dosage: 30 MG/KG
     Route: 042
     Dates: start: 20130314, end: 20130316
  3. FOSPHENYTOIN SODIUM. [Suspect]
     Active Substance: FOSPHENYTOIN SODIUM
     Indication: PROPHYLAXIS
     Dosage: 7.5 MG/KG/DAY
     Route: 042
     Dates: start: 20130315, end: 20130317
  4. MANNITOL. [Concomitant]
     Active Substance: MANNITOL
     Indication: ENCEPHALOPATHY
     Dosage: 2 G/KG
     Route: 042
     Dates: start: 20130314, end: 20130317
  5. CEFOTAXIME [Concomitant]
     Active Substance: CEFOTAXIME SODIUM
     Indication: ENCEPHALOPATHY
     Dosage: 360 MG/KG
     Route: 042
     Dates: start: 20130314
  6. THIOPENTAL SODIUM. [Suspect]
     Active Substance: THIOPENTAL SODIUM
     Indication: SEIZURE
     Dosage: 2 MG/KG
     Route: 042
     Dates: start: 20130314, end: 20130316
  7. IMMUNE SERUM GLOBULIN [Concomitant]
     Active Substance: IMMUNE GLOBULIN NOS
     Indication: ENCEPHALOPATHY
     Dosage: 1 G/DAY
     Route: 042
     Dates: start: 20130314, end: 20130315
  8. OMEPRAL [Concomitant]
     Active Substance: OMEPRAZOLE
     Indication: PROPHYLAXIS AGAINST GASTROINTESTINAL ULCER
     Dosage: 0.5 MG/KG
     Route: 042
     Dates: start: 20130314, end: 20130316
  9. ACICLOVIR [Concomitant]
     Active Substance: ACYCLOVIR
     Indication: ENCEPHALOPATHY
     Dosage: 30 MG/KG
     Route: 042
     Dates: start: 20130314, end: 20130318
  10. AMPICILLIN SODIUM W/SULBACTAM SODIUM [Concomitant]
     Active Substance: AMPICILLIN SODIUM\SULBACTAM SODIUM
     Indication: PNEUMONIA
     Dosage: 300 MG/KG
     Route: 042
     Dates: start: 20130314, end: 20130318
  11. HEPARIN SODIUM. [Concomitant]
     Active Substance: HEPARIN SODIUM
     Indication: THROMBOSIS
     Dosage: 10 UNIT/KG CONTINUOUS I.V. INFUSION
     Route: 042
     Dates: start: 20130314, end: 20130316

REACTIONS (4)
  - Product use issue [Unknown]
  - Respiratory depression [Recovered/Resolved]
  - Pneumonia aspiration [Unknown]
  - Dyskinesia [Unknown]

NARRATIVE: CASE EVENT DATE: 20130314
